FAERS Safety Report 4269813-3 (Version None)
Quarter: 2004Q1

REPORT INFORMATION
  Report Type: 
  Country: None (occurrence: None)
  Receive Date: 20040112
  Receipt Date: 20031230
  Transmission Date: 20041129
  Serious: Yes (Hospitalization, Other)
  Sender: FDA-Public Use
  Company Number: 2003126500

PATIENT
  Age: 58 Year
  Sex: Female
  Weight: 35.3806 kg

DRUGS (4)
  1. GABAPENTIN [Suspect]
     Indication: NEUROPATHY
     Dosage: 600 MG (BID)
     Dates: start: 20010101
  2. SEVELAMER (SEVELAMER) [Concomitant]
  3. LANSOPRAZOLE [Concomitant]
  4. GEMFIBROZIL [Concomitant]

REACTIONS (7)
  - BLOOD INSULIN INCREASED [None]
  - BLOOD PARATHYROID HORMONE INCREASED [None]
  - DECREASED APPETITE [None]
  - DIZZINESS [None]
  - FATIGUE [None]
  - HYPOGLYCAEMIA [None]
  - HYPOTENSION [None]
